FAERS Safety Report 5493829-2 (Version None)
Quarter: 2007Q4

REPORT INFORMATION
  Report Type: 
  Country: None (occurrence: None)
  Receive Date: 20071015
  Receipt Date: 20070906
  Transmission Date: 20080405
  Serious: No
  Sender: FDA-Public Use
  Company Number: 2007SP003112

PATIENT
  Age: 67 Year
  Sex: Male
  Weight: 79.3795 kg

DRUGS (4)
  1. LUNESTA [Suspect]
     Indication: INSOMNIA
     Dosage: 2 MG; ORAL; 3 MG; ORAL; 4 MG; ORAL; 5 MG; HS; ORAL
     Route: 048
     Dates: start: 20050101, end: 20050101
  2. LUNESTA [Suspect]
     Indication: INSOMNIA
     Dosage: 2 MG; ORAL; 3 MG; ORAL; 4 MG; ORAL; 5 MG; HS; ORAL
     Route: 048
     Dates: start: 20050101, end: 20050101
  3. LUNESTA [Suspect]
     Indication: INSOMNIA
     Dosage: 2 MG; ORAL; 3 MG; ORAL; 4 MG; ORAL; 5 MG; HS; ORAL
     Route: 048
     Dates: start: 20050101, end: 20050101
  4. LUNESTA [Suspect]
     Indication: INSOMNIA
     Dosage: 2 MG; ORAL; 3 MG; ORAL; 4 MG; ORAL; 5 MG; HS; ORAL
     Route: 048
     Dates: start: 20050101

REACTIONS (2)
  - DYSGEUSIA [None]
  - INSOMNIA [None]
